FAERS Safety Report 24136127 (Version 1)
Quarter: 2024Q3

REPORT INFORMATION
  Report Type: Spontaneous
  Country: FR (occurrence: FR)
  Receive Date: 20240725
  Receipt Date: 20240725
  Transmission Date: 20241017
  Serious: Yes (Other)
  Sender: PFIZER
  Company Number: FR-GSKCCFEMEA-Case-02022158_AE-85365

PATIENT
  Age: 87 Year
  Sex: Female

DRUGS (3)
  1. CARBOPLATIN [Suspect]
     Active Substance: CARBOPLATIN
     Dosage: UNK
     Dates: start: 20231127
  2. PACLITAXEL [Suspect]
     Active Substance: PACLITAXEL
     Dosage: UNK
     Dates: start: 20231123
  3. JEMPERLI [Suspect]
     Active Substance: DOSTARLIMAB-GXLY
     Dosage: UNK
     Dates: start: 20231127

REACTIONS (3)
  - Autoimmune hepatitis [Recovered/Resolved]
  - Gamma-glutamyltransferase abnormal [Recovered/Resolved]
  - Cell death [Recovered/Resolved]
